FAERS Safety Report 4674943-8 (Version None)
Quarter: 2005Q2

REPORT INFORMATION
  Report Type: 
  Country: None (occurrence: None)
  Receive Date: 20050525
  Receipt Date: 20050517
  Transmission Date: 20051028
  Serious: Yes (Other)
  Sender: FDA-Public Use
  Company Number: 200512091BCC

PATIENT
  Age: 79 Year
  Sex: Female

DRUGS (1)
  1. MILK OF MAGNESIA TAB [Suspect]
     Indication: FLATULENCE
     Dosage: PRN, ORAL
     Route: 048

REACTIONS (2)
  - BREAST CANCER FEMALE [None]
  - THROMBOSIS [None]
